FAERS Safety Report 14676916 (Version 2)
Quarter: 2018Q1

REPORT INFORMATION
  Report Type: Spontaneous
  Country: IL (occurrence: IL)
  Receive Date: 20180324
  Receipt Date: 20180330
  Transmission Date: 20180509
  Serious: Yes (Disabling, Other)
  Sender: FDA-Public Use
  Company Number: IL-AMGEN-ISRSP2018038592

PATIENT
  Age: 90 Year
  Sex: Female

DRUGS (11)
  1. NORVASC [Concomitant]
     Active Substance: AMLODIPINE BESYLATE
     Dosage: 5 MG, UNK (20)
  2. BONDORMIN [Concomitant]
     Active Substance: BROTIZOLAM
     Dosage: 0.25 MG, UNK
  3. NORTYLIN [Concomitant]
     Dosage: 25 MG, UNK
  4. VITAMIDYNE D [Concomitant]
     Dosage: UNK
  5. PROLIA [Suspect]
     Active Substance: DENOSUMAB
     Indication: PRODUCT USED FOR UNKNOWN INDICATION
     Dosage: 60 MG, UNK
     Route: 065
     Dates: start: 20171210
  6. OMEPRADEX [Concomitant]
     Active Substance: OMEPRAZOLE
     Dosage: 20 MG, UNK
  7. CALCIUM + VITAMIN D [Concomitant]
     Active Substance: CALCIUM\VITAMIN D
     Dosage: UNK
  8. VABEN [Concomitant]
     Active Substance: OXAZEPAM
     Dosage: UNK
  9. CALTRATE WITH VITAMIN D [Concomitant]
     Active Substance: CALCIUM CARBONATE\CHOLECALCIFEROL
     Dosage: CALTRATE 600 + VIT D
  10. CARTIA XT [Concomitant]
     Active Substance: DILTIAZEM HYDROCHLORIDE
     Dosage: UNK
  11. PRAVALIP [Concomitant]
     Dosage: 20 MG, UNK

REACTIONS (9)
  - Back pain [Not Recovered/Not Resolved]
  - Peripheral swelling [Unknown]
  - Nervousness [Unknown]
  - Gait inability [Not Recovered/Not Resolved]
  - Urinary tract infection [Not Recovered/Not Resolved]
  - Feeling abnormal [Unknown]
  - Pain in extremity [Not Recovered/Not Resolved]
  - Hypertension [Recovered/Resolved]
  - Restlessness [Unknown]

NARRATIVE: CASE EVENT DATE: 201802
